FAERS Safety Report 21872942 (Version 7)
Quarter: 2023Q2

REPORT INFORMATION
  Report Type: Spontaneous
  Country: CZ (occurrence: CZ)
  Receive Date: 20230117
  Receipt Date: 20230412
  Transmission Date: 20230722
  Serious: Yes (Hospitalization, Other)
  Sender: FDA-Public Use
  Company Number: CZ-MYLANLABS-2023M1003516

PATIENT
  Age: 38 Year
  Sex: Male

DRUGS (9)
  1. FENTANYL [Suspect]
     Active Substance: FENTANYL
     Indication: Back pain
     Dosage: 300?G,QH ,100?GDAILY,EACH 3DAY TRANSDERMALLY
     Route: 062
  2. FENTANYL [Suspect]
     Active Substance: FENTANYL
     Indication: Adenocarcinoma gastric
     Dosage: 250 MICROGRAM, QH
     Route: 062
  3. FENTANYL [Suspect]
     Active Substance: FENTANYL
     Dosage: 200 MICROGRAM PER HOUR A 3 DAYS
     Route: 062
  4. MORPHINE [Concomitant]
     Active Substance: MORPHINE
     Indication: Analgesic therapy
     Dosage: MAX 6 TIMESADAY WITH MINIMAL INTERVAL OF 4HOURS
     Route: 058
  5. MORPHINE [Concomitant]
     Active Substance: MORPHINE
     Dosage: 10 MILLIGRAM, PRN (AS NEEDED)
     Route: 058
  6. ESCITALOPRAM [Concomitant]
     Active Substance: ESCITALOPRAM OXALATE
     Indication: Product used for unknown indication
     Dosage: 20 MG, QD,ONCE DAILY IN THE MORNING
     Route: 048
  7. DIAZEPAM [Concomitant]
     Active Substance: DIAZEPAM
     Indication: Restlessness
     Dosage: SIGNIFICANTRESTLESSNESSCANAPPLIEDAGAINAFTER4HOUR
     Route: 042
  8. LACTULOSE [Concomitant]
     Active Substance: LACTULOSE
     Indication: Product used for unknown indication
     Dosage: 15 MILLILITER, TID
     Route: 065
  9. LACTULOSE [Concomitant]
     Active Substance: LACTULOSE
     Dosage: 45 MILLILITER, QD (15 ML, TID)
     Route: 048

REACTIONS (20)
  - Sopor [Recovered/Resolved]
  - Withdrawal syndrome [Recovering/Resolving]
  - Altered state of consciousness [Recovered/Resolved]
  - Drug dependence [Recovered/Resolved]
  - Coma [Recovered/Resolved]
  - Intentional overdose [Recovered/Resolved]
  - Somnolence [Recovered/Resolved]
  - Hyperaesthesia [Recovered/Resolved]
  - Drug abuse [Recovered/Resolved]
  - Drug withdrawal syndrome [Recovered/Resolved]
  - Intentional product misuse [Unknown]
  - Neck pain [Recovered/Resolved]
  - Psychomotor hyperactivity [Recovered/Resolved]
  - Eating disorder [Recovered/Resolved]
  - Thirst decreased [Recovered/Resolved]
  - Wrong technique in product usage process [Unknown]
  - Incorrect route of product administration [Unknown]
  - Restlessness [Recovered/Resolved]
  - Constipation [Recovered/Resolved]
  - Headache [Recovered/Resolved]
